FAERS Safety Report 15013971 (Version 1)
Quarter: 2018Q2

REPORT INFORMATION
  Report Type: Spontaneous
  Country: US (occurrence: US)
  Receive Date: 20180614
  Receipt Date: 20180614
  Transmission Date: 20180711
  Serious: No
  Sender: FDA-Public Use
  Company Number: US-009507513-1805USA011287

PATIENT
  Age: 64 Year
  Sex: Female

DRUGS (3)
  1. ZETIA [Suspect]
     Active Substance: EZETIMIBE
     Indication: BLOOD CHOLESTEROL
     Dosage: UNK
     Route: 048
  2. GLIMEPIRIDE. [Concomitant]
     Active Substance: GLIMEPIRIDE
  3. SYNTHROID [Concomitant]
     Active Substance: LEVOTHYROXINE SODIUM

REACTIONS (3)
  - Drug effect incomplete [Not Recovered/Not Resolved]
  - Chest pain [Not Recovered/Not Resolved]
  - Drug ineffective [Not Recovered/Not Resolved]

NARRATIVE: CASE EVENT DATE: 201805
